FAERS Safety Report 15894644 (Version 2)
Quarter: 2019Q1

REPORT INFORMATION
  Report Type: Spontaneous
  Country: US (occurrence: US)
  Receive Date: 20190131
  Receipt Date: 20190215
  Transmission Date: 20190417
  Serious: No
  Sender: FDA-Public Use
  Company Number: US-PFIZER INC-2019044646

PATIENT
  Sex: Male

DRUGS (2)
  1. LIOTHYRONINE SODIUM. [Suspect]
     Active Substance: LIOTHYRONINE SODIUM
     Dosage: 25 MG, 2X/DAY
  2. LIOTHYRONINE SODIUM. [Suspect]
     Active Substance: LIOTHYRONINE SODIUM
     Dosage: 25 MG, 4X/DAY (SPLITS THE 25MCG IN HALF, SO HE TAKES 12.5MCG 4 TIMES/DAY)

REACTIONS (2)
  - Feeling abnormal [Unknown]
  - Drug ineffective [Unknown]
